FAERS Safety Report 8429210-3 (Version None)
Quarter: 2012Q2

REPORT INFORMATION
  Report Type: 
  Country: None (occurrence: None)
  Receive Date: 20120612
  Receipt Date: 20120606
  Transmission Date: 20120825
  Serious: Yes (Other)
  Sender: FDA-Public Use
  Company Number: PHHY2011CA36303

PATIENT
  Sex: Female

DRUGS (2)
  1. SANDOSTATIN LAR [Suspect]
     Dosage: 40 MG, EVERY 4 WEEKS
     Route: 030
  2. SANDOSTATIN LAR [Suspect]
     Indication: CARCINOID TUMOUR
     Dosage: 40 MG, QMO
     Route: 030
     Dates: start: 20100106

REACTIONS (11)
  - DYSPNOEA EXERTIONAL [None]
  - HYPOPHAGIA [None]
  - ASTHENIA [None]
  - SOMNOLENCE [None]
  - WEIGHT DECREASED [None]
  - MUSCULAR WEAKNESS [None]
  - GENERAL PHYSICAL HEALTH DETERIORATION [None]
  - BLOOD PRESSURE DECREASED [None]
  - ABASIA [None]
  - PRODUCTIVE COUGH [None]
  - CONSTIPATION [None]
